FAERS Safety Report 15191081 (Version 1)
Quarter: 2018Q3

REPORT INFORMATION
  Report Type: Spontaneous
  Country: US (occurrence: US)
  Receive Date: 20180724
  Receipt Date: 20180724
  Transmission Date: 20181010
  Serious: Yes (Hospitalization)
  Sender: FDA-Public Use
  Company Number: US-BAYER-2017-200170

PATIENT
  Age: 71 Year
  Sex: Male

DRUGS (4)
  1. ALEVE [Suspect]
     Active Substance: NAPROXEN SODIUM
     Indication: ARTHRITIS
     Dosage: UNK UNK, BID
     Route: 065
  2. XARELTO [Suspect]
     Active Substance: RIVAROXABAN
     Indication: HYPERTENSION
     Dosage: UNK
     Route: 048
     Dates: start: 20141101, end: 20151115
  3. ALEVE [Suspect]
     Active Substance: NAPROXEN SODIUM
     Indication: COAGULOPATHY
  4. BAYER ASPIRIN [Suspect]
     Active Substance: ASPIRIN
     Indication: DYSPEPSIA
     Dosage: UNK UNK, QD
     Route: 065

REACTIONS (3)
  - Large intestinal haemorrhage [Recovering/Resolving]
  - Off label use [Unknown]
  - Product use in unapproved indication [Unknown]

NARRATIVE: CASE EVENT DATE: 20141101
